FAERS Safety Report 7130131-7 (Version None)
Quarter: 2010Q4

REPORT INFORMATION
  Report Type: 
  Country: None (occurrence: None)
  Receive Date: 20101201
  Receipt Date: 20101119
  Transmission Date: 20110411
  Serious: Yes (Other)
  Sender: FDA-Public Use
  Company Number: BR-CELGENEUS-020-20785-10112289

PATIENT
  Age: 54 Year
  Sex: Female

DRUGS (4)
  1. THALOMID [Suspect]
     Indication: EPIDERMOLYSIS BULLOSA
     Route: 048
  2. PREDNISONE [Concomitant]
     Indication: EPIDERMOLYSIS BULLOSA
     Route: 065
  3. METHOTREXATE [Concomitant]
     Indication: EPIDERMOLYSIS BULLOSA
     Route: 065
  4. DAPSONE [Concomitant]
     Indication: EPIDERMOLYSIS BULLOSA
     Route: 065

REACTIONS (7)
  - DIABETES MELLITUS [None]
  - DYSPHAGIA [None]
  - DYSPHONIA [None]
  - EPIDERMOLYSIS BULLOSA [None]
  - EPISTAXIS [None]
  - HYPERTENSION [None]
  - RESPIRATORY FAILURE [None]
